FAERS Safety Report 11720865 (Version 2)
Quarter: 2015Q4

REPORT INFORMATION
  Report Type: Spontaneous
  Country: US (occurrence: US)
  Receive Date: 20151110
  Receipt Date: 20151125
  Transmission Date: 20160304
  Serious: Yes (Hospitalization)
  Sender: FDA-Public Use
  Company Number: US-JAZZ-2015-US-018476

PATIENT
  Sex: Female

DRUGS (4)
  1. XYREM [Suspect]
     Active Substance: SODIUM OXYBATE
     Dosage: 3 G, QD
     Route: 048
     Dates: start: 200503, end: 200505
  2. XYREM [Suspect]
     Active Substance: SODIUM OXYBATE
     Dosage: 6.5 G, QD
     Route: 048
     Dates: start: 200505, end: 2005
  3. XYREM [Suspect]
     Active Substance: SODIUM OXYBATE
     Dosage: UNKNOWN DOSE
     Route: 048
  4. XYREM [Suspect]
     Active Substance: SODIUM OXYBATE
     Indication: PRODUCT USED FOR UNKNOWN INDICATION
     Dosage: 2.25 G, BID
     Route: 048
     Dates: start: 200502, end: 200503

REACTIONS (3)
  - Injury [Unknown]
  - Hospitalisation [Unknown]
  - Fall [Unknown]

NARRATIVE: CASE EVENT DATE: 2005
